FAERS Safety Report 6431798-9 (Version None)
Quarter: 2009Q4

REPORT INFORMATION
  Report Type: 
  Country: None (occurrence: None)
  Receive Date: 20091104
  Receipt Date: 20091020
  Transmission Date: 20100525
  Serious: Yes (Hospitalization)
  Sender: FDA-Public Use
  Company Number: ALA_00376_2009

PATIENT
  Age: 36 Year
  Sex: Male

DRUGS (2)
  1. MESALAMINE [Suspect]
     Indication: CROHN'S DISEASE
     Dosage: DF
  2. PREDNISONE [Concomitant]

REACTIONS (4)
  - MYOCARDITIS [None]
  - SYNCOPE [None]
  - TRIFASCICULAR BLOCK [None]
  - VENTRICULAR HYPERTROPHY [None]
